FAERS Safety Report 8013401-X (Version None)
Quarter: 2011Q4

REPORT INFORMATION
  Report Type: 
  Country: None (occurrence: None)
  Receive Date: 20111229
  Receipt Date: 20111215
  Transmission Date: 20120403
  Serious: Yes (Hospitalization)
  Sender: FDA-Public Use
  Company Number: IR-MYLANLABS-2011S1026211

PATIENT
  Age: 77 Year
  Sex: Female

DRUGS (1)
  1. DIGOXIN [Suspect]
     Route: 065

REACTIONS (1)
  - VERTIGO [None]
